APPROVED DRUG PRODUCT: RITONAVIR
Active Ingredient: RITONAVIR
Strength: 100MG
Dosage Form/Route: TABLET;ORAL
Application: A202573 | Product #001 | TE Code: AB
Applicant: CIPLA LTD
Approved: Jan 15, 2015 | RLD: No | RS: No | Type: RX